FAERS Safety Report 6524475-7 (Version None)
Quarter: 2009Q4

REPORT INFORMATION
  Report Type: 
  Country: None (occurrence: None)
  Receive Date: 20091224
  Receipt Date: 20091211
  Transmission Date: 20100525
  Serious: Yes (Other)
  Sender: FDA-Public Use
  Company Number: 2009AL007845

PATIENT
  Age: 33 Year
  Sex: Male

DRUGS (1)
  1. CITALOPRAM HYDROBROMIDE [Suspect]
     Indication: DEPRESSED MOOD
     Dosage: 20 MG; PO
     Route: 048
     Dates: start: 20060911, end: 20080606

REACTIONS (3)
  - AZOOSPERMIA [None]
  - BLOOD FOLLICLE STIMULATING HORMONE INCREASED [None]
  - INFERTILITY [None]
